FAERS Safety Report 5235432-5 (Version None)
Quarter: 2007Q1

REPORT INFORMATION
  Report Type: 
  Country: None (occurrence: None)
  Receive Date: 20070212
  Receipt Date: 20070202
  Transmission Date: 20070707
  Serious: Yes (Hospitalization, Other)
  Sender: FDA-Public Use
  Company Number: US-BRISTOL-MYERS SQUIBB COMPANY-13667662

PATIENT
  Age: 53 Year
  Sex: Male
  Weight: 110 kg

DRUGS (12)
  1. COUMADIN [Suspect]
  2. PLAVIX [Suspect]
     Dates: start: 19990101
  3. RISPERDAL [Concomitant]
     Dates: start: 19990101
  4. NAMENDA [Concomitant]
     Dates: start: 19990101
  5. LISINOPRIL [Concomitant]
     Dates: start: 19990101
  6. ZOCOR [Concomitant]
     Dates: start: 19990101
  7. METFORMIN [Concomitant]
     Dates: start: 19990101
  8. GLYBURIDE [Concomitant]
     Dates: start: 19990101
  9. ZINC [Concomitant]
  10. CHROMIUM [Concomitant]
  11. GINSENG [Concomitant]
  12. CARDIZEM [Concomitant]
     Dates: end: 20051001

REACTIONS (2)
  - MYOCARDIAL INFARCTION [None]
  - TRANSIENT ISCHAEMIC ATTACK [None]
